FAERS Safety Report 22022278 (Version 1)
Quarter: 2023Q1

REPORT INFORMATION
  Report Type: Spontaneous
  Country: FR (occurrence: FR)
  Receive Date: 20230222
  Receipt Date: 20230222
  Transmission Date: 20230417
  Serious: Yes (Life-Threatening)
  Sender: FDA-Public Use
  Company Number: FR-002147023-NVSC2022FR286957

PATIENT
  Sex: Male

DRUGS (4)
  1. MEKINIST [Suspect]
     Active Substance: TRAMETINIB DIMETHYL SULFOXIDE
     Indication: Hepatic cancer metastatic
     Dosage: 2 MG, QD
     Route: 048
     Dates: start: 20220919, end: 20221107
  2. MEKINIST [Suspect]
     Active Substance: TRAMETINIB DIMETHYL SULFOXIDE
     Indication: Metastatic malignant melanoma
     Dosage: 1 MG, QD
     Route: 065
     Dates: start: 20230215
  3. TAFINLAR [Suspect]
     Active Substance: DABRAFENIB MESYLATE
     Indication: Hepatic cancer metastatic
     Dosage: 150 MG, BID (MORNING AND EVENING)
     Route: 048
     Dates: start: 20220919
  4. TAFINLAR [Suspect]
     Active Substance: DABRAFENIB MESYLATE
     Indication: Metastatic malignant melanoma

REACTIONS (2)
  - Ejection fraction decreased [Recovered/Resolved with Sequelae]
  - Chest discomfort [Unknown]

NARRATIVE: CASE EVENT DATE: 20220928
